FAERS Safety Report 6621854-4 (Version None)
Quarter: 2010Q1

REPORT INFORMATION
  Report Type: 
  Country: None (occurrence: None)
  Receive Date: 20100309
  Receipt Date: 20100228
  Transmission Date: 20100710
  Serious: Yes (Other)
  Sender: FDA-Public Use
  Company Number: PL-GENENTECH-294980

PATIENT
  Age: 39 Year
  Sex: Male

DRUGS (4)
  1. RITUXAN [Suspect]
     Indication: CHRONIC LYMPHOCYTIC LEUKAEMIA
     Dosage: 900 MG, UNK
     Route: 042
     Dates: start: 20090222
  2. RITUXAN [Suspect]
     Dosage: 1100 MG, UNK
     Route: 042
     Dates: end: 20090716
  3. FLUDARABINE [Suspect]
     Indication: CHRONIC LYMPHOCYTIC LEUKAEMIA
     Dosage: 80 MG, DAYS 1-3, 6 CYCLES
     Route: 048
     Dates: start: 20090222, end: 20090716
  4. CYCLOPHOSPHAMIDE [Suspect]
     Indication: CHRONIC LYMPHOCYTIC LEUKAEMIA
     Dosage: 500 MG, DAYS 1-3, 6 CYCLES
     Route: 048
     Dates: start: 20090222, end: 20090716

REACTIONS (2)
  - BONE MARROW DISORDER [None]
  - GRANULOCYTOPENIA [None]
